FAERS Safety Report 10674014 (Version 6)
Quarter: 2016Q3

REPORT INFORMATION
  Report Type: Report from Study
  Country: DE (occurrence: DE)
  Receive Date: 20141224
  Receipt Date: 20160915
  Transmission Date: 20161109
  Serious: Yes (Hospitalization)
  Sender: FDA-Public Use
  Company Number: DE-INCYTE CORPORATION-2014IN003986

PATIENT
  Age: 65 Year
  Sex: Female
  Weight: 50 kg

DRUGS (22)
  1. LITALIR [Concomitant]
     Active Substance: HYDROXYUREA
     Dosage: 1000 MG, UNK
     Route: 065
     Dates: start: 20151216, end: 20160104
  2. CIPROFLOXACIN. [Concomitant]
     Active Substance: CIPROFLOXACIN
     Indication: PRODUCT USED FOR UNKNOWN INDICATION
     Dosage: 500 OT, UNK
     Route: 065
     Dates: start: 20160804, end: 20160813
  3. JAKAFI [Suspect]
     Active Substance: RUXOLITINIB
     Dosage: 40 MG, (QD) TWICE
     Route: 048
     Dates: start: 20150725
  4. LITALIR [Concomitant]
     Active Substance: HYDROXYUREA
     Dosage: 1000 MG, QD
     Route: 065
     Dates: start: 20141215, end: 20141218
  5. LITALIR [Concomitant]
     Active Substance: HYDROXYUREA
     Dosage: 500 MG, UNK
     Route: 065
     Dates: start: 20160426, end: 20160808
  6. JAKAFI [Suspect]
     Active Substance: RUXOLITINIB
     Dosage: 30 MG, (QD) TWICE
     Route: 048
     Dates: start: 20141030, end: 20141111
  7. JAKAFI [Suspect]
     Active Substance: RUXOLITINIB
     Dosage: 30 MG, (QD) TWICE
     Route: 048
     Dates: start: 20141209, end: 20150724
  8. LITALIR [Concomitant]
     Active Substance: HYDROXYUREA
     Dosage: 500 MG, UNK
     Route: 065
     Dates: start: 20160105, end: 20160323
  9. LITALIR [Concomitant]
     Active Substance: HYDROXYUREA
     Dosage: 1000 MG, UNK
     Route: 065
     Dates: start: 20160809
  10. JAKAFI [Suspect]
     Active Substance: RUXOLITINIB
     Dosage: 10 MG, (QD) TWICE
     Route: 048
     Dates: start: 20140814, end: 20141029
  11. LITALIR [Concomitant]
     Active Substance: HYDROXYUREA
     Dosage: 1500 MG, UNK
     Route: 065
     Dates: start: 20150119, end: 20151215
  12. JAKAFI [Suspect]
     Active Substance: RUXOLITINIB
     Indication: PRIMARY MYELOFIBROSIS
     Dosage: 10 MG, (QD) TWICE
     Route: 048
     Dates: start: 20140528
  13. JAKAFI [Suspect]
     Active Substance: RUXOLITINIB
     Dosage: 30 MG, (QD) TWICE
     Route: 048
     Dates: start: 20140613, end: 20140813
  14. JAKAFI [Suspect]
     Active Substance: RUXOLITINIB
     Dosage: 15 MG (QD)
     Route: 048
     Dates: start: 20141112, end: 20141208
  15. LITALIR [Concomitant]
     Active Substance: HYDROXYUREA
     Indication: MYELOFIBROSIS
     Dosage: 1000 MG, QD
     Route: 065
     Dates: start: 20141215
  16. L-THYROXIN [Concomitant]
     Active Substance: LEVOTHYROXINE SODIUM
     Indication: HYPOTHYROIDISM
     Dosage: 75 MG, UNK
     Route: 065
  17. CLONT [Concomitant]
     Indication: PRODUCT USED FOR UNKNOWN INDICATION
     Dosage: 6 G, QD
     Route: 065
     Dates: start: 20150217, end: 20150306
  18. JAKAFI [Suspect]
     Active Substance: RUXOLITINIB
     Dosage: 40 MG, (QD) TWICE
     Route: 048
     Dates: start: 20160204
  19. IBUPROFEN. [Concomitant]
     Active Substance: IBUPROFEN
     Indication: INTERVERTEBRAL DISC PROTRUSION
     Dosage: 600 MG, UNK
     Route: 065
     Dates: start: 20130902
  20. JAKAFI [Suspect]
     Active Substance: RUXOLITINIB
     Dosage: 30 MG, (QD), TWICE
     Route: 048
     Dates: start: 20151029, end: 20160203
  21. FORMOTEROL [Concomitant]
     Active Substance: FORMOTEROL
     Indication: BRONCHITIS
     Dosage: 2X12.5 UG, BID
     Route: 065
     Dates: start: 20140513
  22. LITALIR [Concomitant]
     Active Substance: HYDROXYUREA
     Dosage: 1500 MG, QD
     Route: 065
     Dates: start: 20141219

REACTIONS (3)
  - Blast cell crisis [Unknown]
  - White blood cell count increased [Unknown]
  - Leukaemoid reaction [Recovered/Resolved]

NARRATIVE: CASE EVENT DATE: 20141208
